FAERS Safety Report 18801636 (Version 1)
Quarter: 2021Q1

REPORT INFORMATION
  Report Type: Spontaneous
  Country: DE (occurrence: DE)
  Receive Date: 20210128
  Receipt Date: 20210128
  Transmission Date: 20210419
  Serious: Yes (Hospitalization)
  Sender: FDA-Public Use
  Company Number: DE-TEVA-2021-DE-1873036

PATIENT
  Age: 67 Year
  Sex: Female

DRUGS (2)
  1. CISPLATIN. [Suspect]
     Active Substance: CISPLATIN
     Dosage: 30 MG, 23102020
  2. FLUOROURACIL. [Suspect]
     Active Substance: FLUOROURACIL
     Dosage: 1521 MG
     Dates: start: 20201023

REACTIONS (6)
  - Fatigue [Unknown]
  - Condition aggravated [Unknown]
  - Weight decreased [Unknown]
  - Paraesthesia [Unknown]
  - General physical health deterioration [Unknown]
  - Nausea [Unknown]
